FAERS Safety Report 17468834 (Version 1)
Quarter: 2020Q1

REPORT INFORMATION
  Report Type: Spontaneous
  Country: US (occurrence: US)
  Receive Date: 20200227
  Receipt Date: 20200227
  Transmission Date: 20200409
  Serious: Yes (Hospitalization)
  Sender: FDA-Public Use
  Company Number: US-ROCHE-2553621

PATIENT
  Sex: Female
  Weight: 53.57 kg

DRUGS (1)
  1. XOFLUZA [Suspect]
     Active Substance: BALOXAVIR MARBOXIL
     Indication: INFLUENZA
     Dosage: ONGOING:NO
     Route: 048
     Dates: start: 20200114, end: 20200114

REACTIONS (5)
  - Cough [Recovering/Resolving]
  - Malaise [Recovering/Resolving]
  - Ill-defined disorder [Recovering/Resolving]
  - Asthenia [Recovering/Resolving]
  - Atrial fibrillation [Recovered/Resolved]
